FAERS Safety Report 10984202 (Version 1)
Quarter: 2015Q2

REPORT INFORMATION
  Report Type: Spontaneous
  Country: US (occurrence: US)
  Receive Date: 20150403
  Receipt Date: 20150403
  Transmission Date: 20150821
  Serious: Yes (Hospitalization)
  Sender: FDA-Public Use
  Company Number: US-JNJFOC-20150322018

PATIENT
  Age: 67 Year
  Sex: Female

DRUGS (4)
  1. XARELTO [Suspect]
     Active Substance: RIVAROXABAN
     Indication: PRODUCT USED FOR UNKNOWN INDICATION
     Route: 048
  2. BUMETANIDE. [Concomitant]
     Active Substance: BUMETANIDE
     Route: 065
  3. SPIRONOLACTONE. [Concomitant]
     Active Substance: SPIRONOLACTONE
     Route: 065
  4. ADEMPAS [Concomitant]
     Active Substance: RIOCIGUAT
     Route: 065
     Dates: start: 20141211

REACTIONS (4)
  - Haemorrhage intracranial [Unknown]
  - Loss of consciousness [Unknown]
  - Head injury [Unknown]
  - Coma [Unknown]

NARRATIVE: CASE EVENT DATE: 20150318
